FAERS Safety Report 7860496-X (Version None)
Quarter: 2011Q4

REPORT INFORMATION
  Report Type: 
  Country: None (occurrence: None)
  Receive Date: 20111027
  Receipt Date: 20111024
  Transmission Date: 20120403
  Serious: Yes (Hospitalization)
  Sender: FDA-Public Use
  Company Number: US-B.I. PHARMACEUTICALS,INC./RIDGEFIELD-2011-BP-23479BP

PATIENT
  Age: 78 Year
  Sex: Male

DRUGS (5)
  1. DILTIAZEM [Concomitant]
  2. OMEPRAZOLE [Concomitant]
  3. LISINOPRIL [Concomitant]
  4. RYTHMOL [Concomitant]
     Dates: start: 20110901
  5. PRADAXA [Suspect]
     Indication: ATRIAL FIBRILLATION
     Dosage: 300 MG
     Route: 048
     Dates: start: 20110901, end: 20110909

REACTIONS (4)
  - CONSTIPATION [None]
  - PANCYTOPENIA [None]
  - CONFUSIONAL STATE [None]
  - HYPOGLYCAEMIA [None]
